FAERS Safety Report 5086105-3 (Version None)
Quarter: 2006Q3

REPORT INFORMATION
  Report Type: 
  Country: None (occurrence: None)
  Receive Date: 20060818
  Receipt Date: 20060801
  Transmission Date: 20061208
  Serious: Yes (Hospitalization)
  Sender: FDA-Public Use
  Company Number: MX200608000850

PATIENT
  Age: 44 Year
  Sex: Male
  Weight: 67 kg

DRUGS (1)
  1. ZYPREXA [Suspect]
     Indication: SCHIZOPHRENIA
     Dates: start: 20030101

REACTIONS (10)
  - BLOOD CHOLESTEROL INCREASED [None]
  - BLOOD PROLACTIN INCREASED [None]
  - BLOOD TRIGLYCERIDES INCREASED [None]
  - CONFUSIONAL STATE [None]
  - DELIRIUM [None]
  - DISORIENTATION [None]
  - DYSARTHRIA [None]
  - GALACTORRHOEA [None]
  - METABOLIC SYNDROME [None]
  - WEIGHT INCREASED [None]
